FAERS Safety Report 7659384-3 (Version None)
Quarter: 2011Q3

REPORT INFORMATION
  Report Type: 
  Country: None (occurrence: None)
  Receive Date: 20110805
  Receipt Date: 20110728
  Transmission Date: 20111222
  Serious: Yes (Death, Hospitalization, Other)
  Sender: FDA-Public Use
  Company Number: ES-BAYER-201035325GPV

PATIENT
  Age: 42 Year
  Sex: Male

DRUGS (16)
  1. METHADONE HYDROCHLORIDE [Concomitant]
     Dosage: 14 MG, QD
     Route: 042
     Dates: start: 20100813, end: 20100814
  2. FUROSEMIDE [Concomitant]
     Indication: ASCITES
  3. DEXAMETHASONE [Concomitant]
     Dosage: 6 MG, QD
     Route: 048
  4. RANITIDINE [Concomitant]
     Indication: CONSTIPATION
     Dosage: 300 MG, QD
     Route: 048
  5. MORPHINE [Concomitant]
     Indication: PAIN
     Dosage: 5 MG, QD
     Route: 042
     Dates: start: 20100811, end: 20100811
  6. FUROSEMIDE [Concomitant]
     Dosage: 60 MG, QD
     Route: 042
     Dates: start: 20100811, end: 20100815
  7. ERLOTINIB HYDROCHLORIDE [Suspect]
     Indication: HEPATIC NEOPLASM MALIGNANT
     Dosage: 150 MG, QD
     Route: 048
     Dates: start: 20100708, end: 20100729
  8. METHADONE HYDROCHLORIDE [Concomitant]
     Indication: PAIN
     Dosage: 27 MG, QD
     Route: 048
     Dates: start: 20100722
  9. METHADONE HYDROCHLORIDE [Concomitant]
     Dosage: 12 MG, QD
     Route: 042
     Dates: start: 20100811, end: 20100812
  10. SORAFENIB (RAF KINASE INHIBITOR) [Suspect]
     Indication: HEPATIC NEOPLASM MALIGNANT
     Dosage: 400 MG, BID
     Route: 048
     Dates: start: 20100708, end: 20100729
  11. SINOGAN [Concomitant]
     Dosage: 7 GTT, QD
     Route: 048
  12. MAGNESIUM [Concomitant]
     Indication: CONSTIPATION
     Route: 048
  13. INNOHEP [Concomitant]
     Dosage: UNK
     Route: 058
     Dates: start: 20100722
  14. FUROSEMIDE [Concomitant]
     Indication: ASCITES
     Dosage: 40 MG, QD
     Route: 042
     Dates: start: 20100809, end: 20100810
  15. METHADONE HYDROCHLORIDE [Concomitant]
     Dosage: 15 MG, QD
     Route: 042
     Dates: start: 20100801, end: 20100810
  16. FUROSEMIDE [Concomitant]
     Indication: OEDEMA
     Dosage: 80 MG, QD
     Route: 048

REACTIONS (2)
  - ASCITES [None]
  - HEPATIC ENCEPHALOPATHY [None]
